FAERS Safety Report 20702764 (Version 3)
Quarter: 2022Q2

REPORT INFORMATION
  Report Type: Spontaneous
  Country: US (occurrence: US)
  Receive Date: 20220412
  Receipt Date: 20220620
  Transmission Date: 20220720
  Serious: No
  Sender: FDA-Public Use
  Company Number: US-Blueprint Medicines Corporation-SP-US-2022-000865

PATIENT
  Sex: Male

DRUGS (2)
  1. AYVAKIT [Suspect]
     Active Substance: AVAPRITINIB
     Indication: Gastrointestinal stromal tumour
     Route: 048
     Dates: start: 20201010
  2. AYVAKIT [Suspect]
     Active Substance: AVAPRITINIB
     Route: 048
     Dates: start: 20201010

REACTIONS (12)
  - Sensitive skin [Unknown]
  - Gastric disorder [Unknown]
  - Inflammation [Unknown]
  - Food intolerance [Unknown]
  - Hypersomnia [Unknown]
  - Lacrimation increased [Unknown]
  - Blood bilirubin increased [Unknown]
  - Fatigue [Recovering/Resolving]
  - Headache [Unknown]
  - Tendonitis [Unknown]
  - Product dose omission issue [Unknown]
  - Hordeolum [Unknown]
